FAERS Safety Report 18117366 (Version 3)
Quarter: 2020Q3

REPORT INFORMATION
  Report Type: Spontaneous
  Country: DE (occurrence: DE)
  Receive Date: 20200806
  Receipt Date: 20200910
  Transmission Date: 20201103
  Serious: No
  Sender: FDA-Public Use
  Company Number: DE-009507513-2008DEU000616

PATIENT
  Age: 17 Year
  Sex: Female

DRUGS (1)
  1. IMPLANON [Suspect]
     Active Substance: ETONOGESTREL
     Indication: CONTRACEPTION
     Dosage: 1 IMPLANT
     Route: 059
     Dates: start: 20200708

REACTIONS (7)
  - Presyncope [Not Recovered/Not Resolved]
  - Headache [Recovered/Resolved]
  - Nausea [Not Recovered/Not Resolved]
  - Blood pressure fluctuation [Not Recovered/Not Resolved]
  - Abdominal pain [Recovered/Resolved]
  - Cardiovascular disorder [Not Recovered/Not Resolved]
  - Malaise [Not Recovered/Not Resolved]

NARRATIVE: CASE EVENT DATE: 20200715
